FAERS Safety Report 7486553-8 (Version None)
Quarter: 2011Q2

REPORT INFORMATION
  Report Type: 
  Country: None (occurrence: None)
  Receive Date: 20110517
  Receipt Date: 20110512
  Transmission Date: 20111010
  Serious: Yes (Disabling, Other)
  Sender: FDA-Public Use
  Company Number: FR-PFIZER INC-2011045395

PATIENT
  Age: 53 Year
  Sex: Female

DRUGS (6)
  1. TANGANIL [Concomitant]
     Indication: VERTIGO
     Dosage: 500 MG, 1X/DAY
     Route: 048
     Dates: start: 20101117, end: 20101202
  2. NEXIUM [Concomitant]
     Indication: GASTROOESOPHAGEAL REFLUX PROPHYLAXIS
     Dosage: 20 MG, 1X/DAY
     Route: 048
     Dates: start: 20101117
  3. ALPRAZOLAM [Concomitant]
  4. CLONAZEPAM [Concomitant]
     Dosage: UNK
  5. ATORVASTATIN CALCIUM [Suspect]
     Indication: ARTERIOSCLEROSIS CORONARY ARTERY
     Dosage: 40 MG, 1X/DAY
     Route: 048
     Dates: start: 20101117, end: 20110120
  6. ASPIRIN [Concomitant]
     Indication: PLATELET AGGREGATION
     Dosage: 160 MG, 1X/DAY
     Route: 048
     Dates: start: 20101117

REACTIONS (3)
  - ARTHRALGIA [None]
  - BURNING SENSATION [None]
  - VISUAL FIELD DEFECT [None]
